FAERS Safety Report 19430114 (Version 1)
Quarter: 2021Q2

REPORT INFORMATION
  Report Type: Spontaneous
  Country: LT (occurrence: LT)
  Receive Date: 20210617
  Receipt Date: 20210617
  Transmission Date: 20210717
  Serious: Yes (Other)
  Sender: FDA-Public Use
  Company Number: LT-MYLANLABS-2021M1034829

PATIENT
  Age: 67 Year
  Sex: Female

DRUGS (8)
  1. TOPIRAMATE. [Concomitant]
     Active Substance: TOPIRAMATE
     Dosage: 25 MILLIGRAM
     Route: 065
     Dates: start: 2020
  2. AMITRIPTYLINE [Suspect]
     Active Substance: AMITRIPTYLINE
     Indication: MIGRAINE PROPHYLAXIS
     Dosage: 25 MILLIGRAM
     Route: 065
  3. DULOXETINE. [Suspect]
     Active Substance: DULOXETINE
     Dosage: 30 MILLIGRAM
     Dates: start: 202005
  4. METOPROLOL. [Suspect]
     Active Substance: METOPROLOL
     Indication: MIGRAINE PROPHYLAXIS
     Dosage: 50 MILLIGRAM
     Route: 065
     Dates: start: 2020
  5. GABAPENTIN. [Concomitant]
     Active Substance: GABAPENTIN
     Indication: MIGRAINE PROPHYLAXIS
     Dosage: 300 MILLIGRAM
     Route: 065
  6. TOPIRAMATE. [Concomitant]
     Active Substance: TOPIRAMATE
     Indication: MIGRAINE PROPHYLAXIS
     Dosage: 12.5 MILLIGRAM
     Route: 065
     Dates: start: 2020
  7. DULOXETINE. [Suspect]
     Active Substance: DULOXETINE
     Indication: MIGRAINE PROPHYLAXIS
     Dosage: 30 MILLIGRAM
     Dates: start: 201008
  8. DULOXETINE. [Suspect]
     Active Substance: DULOXETINE
     Dosage: 60 MILLIGRAM
     Route: 065
     Dates: start: 202005

REACTIONS (4)
  - Weight increased [Unknown]
  - Drug ineffective [Unknown]
  - Myocardial infarction [Unknown]
  - Sedation [Unknown]

NARRATIVE: CASE EVENT DATE: 202004
